FAERS Safety Report 7720734-0 (Version None)
Quarter: 2011Q3

REPORT INFORMATION
  Report Type: 
  Country: None (occurrence: None)
  Receive Date: 20110825
  Receipt Date: 20110805
  Transmission Date: 20111222
  Serious: Yes (Life-Threatening, Hospitalization)
  Sender: FDA-Public Use
  Company Number: 2280705-2011-00020

PATIENT
  Age: 59 Year
  Sex: Female

DRUGS (1)
  1. ORAJEL SEVERE PAIN, BENZOCAINE 20%, MENTHOL 0.25% [Suspect]
     Indication: ANALGESIC THERAPY
     Dosage: UP TO 3 TUBES/DAY, ORAL
     Route: 048

REACTIONS (8)
  - METHAEMOGLOBINAEMIA [None]
  - PARAESTHESIA [None]
  - INCORRECT DOSE ADMINISTERED [None]
  - HYPOAESTHESIA [None]
  - MALAISE [None]
  - PALLOR [None]
  - CHEST PAIN [None]
  - ARTHRITIS [None]
